FAERS Safety Report 12116391 (Version 1)
Quarter: 2016Q1

REPORT INFORMATION
  Report Type: Spontaneous
  Country: US (occurrence: US)
  Receive Date: 20160225
  Receipt Date: 20160225
  Transmission Date: 20160526
  Serious: Yes (Hospitalization)
  Sender: FDA-Public Use
  Company Number: US-BAYER-2016-035742

PATIENT
  Age: 84 Year
  Sex: Female

DRUGS (3)
  1. APIXABAN [Interacting]
     Active Substance: APIXABAN
     Indication: ATRIAL FIBRILLATION
     Dosage: 5 MG, BID
  2. PRAVASTATIN [Suspect]
     Active Substance: PRAVASTATIN\PRAVASTATIN SODIUM
  3. ACETYLSALICYLIC ACID({=100 MG) [Interacting]
     Active Substance: ASPIRIN
     Indication: ANTIPLATELET THERAPY

REACTIONS (4)
  - Traumatic fracture [None]
  - Traumatic haemorrhage [None]
  - Spinal fracture [None]
  - Labelled drug-drug interaction medication error [None]
